FAERS Safety Report 24548731 (Version 2)
Quarter: 2024Q4

REPORT INFORMATION
  Report Type: Spontaneous
  Country: US (occurrence: US)
  Receive Date: 20241025
  Receipt Date: 20241115
  Transmission Date: 20250115
  Serious: Yes (Hospitalization, Other)
  Sender: ALEMBIC
  Company Number: US-ALEMBIC PHARMACUETICALS LIMITED-2024SCAL001537

PATIENT

DRUGS (2)
  1. HYDROCHLOROTHIAZIDE [Suspect]
     Active Substance: HYDROCHLOROTHIAZIDE
     Indication: Oedema peripheral
     Dosage: 12.5 MILLIGRAM
     Route: 065
  2. AMLODIPINE [Concomitant]
     Active Substance: AMLODIPINE BESYLATE
     Indication: Hypertension
     Dosage: 10 MILLIGRAM, QD
     Route: 065

REACTIONS (16)
  - Organ failure [Recovered/Resolved]
  - Acute kidney injury [Unknown]
  - Pancreatitis acute [Recovered/Resolved]
  - Peripancreatic fluid collection [Recovered/Resolved]
  - Abdominal pain upper [Unknown]
  - Hyperhidrosis [Unknown]
  - Dizziness [Unknown]
  - Vomiting [Unknown]
  - Tachypnoea [Unknown]
  - Abdominal tenderness [Unknown]
  - Cold sweat [Unknown]
  - Leukocytosis [Unknown]
  - Neutrophilia [Unknown]
  - Amylase increased [Unknown]
  - Lipase increased [Unknown]
  - Blood urea nitrogen/creatinine ratio increased [Unknown]
